FAERS Safety Report 15504043 (Version 1)
Quarter: 2018Q4

REPORT INFORMATION
  Report Type: Spontaneous
  Country: US (occurrence: US)
  Receive Date: 20181009
  Receipt Date: 20181009
  Transmission Date: 20190205
  Serious: Yes (Hospitalization, Other)
  Sender: FDA-Public Use
  Company Number: None

PATIENT
  Age: 66 Year
  Sex: Male

DRUGS (1)
  1. RITUXIMAB. [Suspect]
     Active Substance: RITUXIMAB

REACTIONS (10)
  - Dyspnoea [None]
  - Pyrexia [None]
  - Hypotension [None]
  - Rash [None]
  - Acute kidney injury [None]
  - Blood glucose increased [None]
  - Abdominal pain [None]
  - Pneumonia aspiration [None]
  - Hypersensitivity [None]
  - Blood pressure decreased [None]

NARRATIVE: CASE EVENT DATE: 20170908
